FAERS Safety Report 10548367 (Version 2)
Quarter: 2014Q4

REPORT INFORMATION
  Report Type: Spontaneous
  Country: FR (occurrence: FR)
  Receive Date: 20141028
  Receipt Date: 20141229
  Transmission Date: 20150529
  Serious: Yes (Hospitalization, Other)
  Sender: FDA-Public Use
  Company Number: FR-PFIZER INC-2014293123

PATIENT
  Age: 78 Year
  Sex: Female

DRUGS (10)
  1. COVERSYL [Concomitant]
     Active Substance: PERINDOPRIL
     Dosage: UNK
  2. INEXIUM [Concomitant]
     Active Substance: ESOMEPRAZOLE
     Dosage: UNK
  3. LEVOTHYROX [Concomitant]
     Active Substance: LEVOTHYROXINE
     Dosage: UNK
  4. CORDARONE [Concomitant]
     Active Substance: AMIODARONE HYDROCHLORIDE
     Dosage: UNK
  5. EFFEXOR [Suspect]
     Active Substance: VENLAFAXINE HYDROCHLORIDE
     Indication: DEPRESSION
     Dosage: 1 DF, DAILY
     Route: 048
     Dates: start: 20140512, end: 20140519
  6. KEPPRA [Concomitant]
     Active Substance: LEVETIRACETAM
     Dosage: UNK
  7. TEMERIT [Concomitant]
     Active Substance: NEBIVOLOL
     Dosage: UNK
  8. PREVISCAN [Concomitant]
     Active Substance: FLUINDIONE
     Dosage: UNK
  9. TAHOR [Concomitant]
     Active Substance: ATORVASTATIN CALCIUM
     Dosage: UNK
  10. ALLOPURINOL. [Concomitant]
     Active Substance: ALLOPURINOL
     Dosage: UNK

REACTIONS (8)
  - Acute kidney injury [Unknown]
  - Blood creatine phosphokinase increased [Unknown]
  - Folate deficiency [Unknown]
  - Hypophagia [Unknown]
  - Faecaloma [Recovered/Resolved]
  - Confusional state [Unknown]
  - Dehydration [Unknown]
  - Urinary retention [Recovered/Resolved]

NARRATIVE: CASE EVENT DATE: 201405
